FAERS Safety Report 8798505 (Version 2)
Quarter: 2015Q1

REPORT INFORMATION
  Report Type: Report from Study
  Country: US (occurrence: US)
  Receive Date: 20120920
  Receipt Date: 20150303
  Transmission Date: 20150721
  Serious: Yes (Death, Other)
  Sender: FDA-Public Use
  Company Number: US-ROCHE-1097737

PATIENT
  Age: 63 Year
  Sex: Female

DRUGS (16)
  1. AVASTIN [Suspect]
     Active Substance: BEVACIZUMAB
     Route: 042
  2. AVASTIN [Suspect]
     Active Substance: BEVACIZUMAB
     Route: 042
  3. ATROPIN [Concomitant]
     Route: 042
  4. XELODA [Concomitant]
     Active Substance: CAPECITABINE
     Route: 065
  5. ERBITUX [Concomitant]
     Active Substance: CETUXIMAB
  6. ABRAXANE [Concomitant]
     Active Substance: PACLITAXEL
  7. CARBOPLATIN. [Concomitant]
     Active Substance: CARBOPLATIN
  8. AVASTIN [Suspect]
     Active Substance: BEVACIZUMAB
     Route: 042
  9. APREPITANT. [Concomitant]
     Active Substance: APREPITANT
     Route: 048
  10. AVASTIN [Suspect]
     Active Substance: BEVACIZUMAB
     Route: 042
  11. AVASTIN [Suspect]
     Active Substance: BEVACIZUMAB
     Route: 042
  12. GEMZAR [Concomitant]
     Active Substance: GEMCITABINE HYDROCHLORIDE
  13. ALTEPLASE [Concomitant]
     Active Substance: ALTEPLASE
     Route: 050
  14. AVASTIN [Suspect]
     Active Substance: BEVACIZUMAB
     Indication: COLON CANCER
     Route: 042
  15. AVASTIN [Suspect]
     Active Substance: BEVACIZUMAB
     Route: 042
  16. ACETAMINOPHEN. [Concomitant]
     Active Substance: ACETAMINOPHEN
     Route: 048

REACTIONS (4)
  - Death [Fatal]
  - Cerebrovascular accident [Unknown]
  - Carcinoembryonic antigen increased [Unknown]
  - Abdominal lymphadenopathy [Unknown]

NARRATIVE: CASE EVENT DATE: 20110807
